FAERS Safety Report 9932379 (Version 1)
Quarter: 2014Q1

REPORT INFORMATION
  Report Type: Spontaneous
  Country: US (occurrence: US)
  Receive Date: 20140228
  Receipt Date: 20140228
  Transmission Date: 20141002
  Serious: No
  Sender: FDA-Public Use
  Company Number: US-ABBVIE-14P-163-1197282-00

PATIENT
  Age: 68 Year
  Sex: Male
  Weight: 82.63 kg

DRUGS (9)
  1. ANDROGEL [Suspect]
     Indication: BLOOD TESTOSTERONE DECREASED
     Dosage: 5 GRAM PACKET
     Route: 061
     Dates: start: 201307
  2. ANDROGEL [Suspect]
     Route: 061
     Dates: start: 201212, end: 201307
  3. PLAVIX [Concomitant]
     Indication: STENT PLACEMENT
  4. CRESTOR [Concomitant]
     Indication: BLOOD CHOLESTEROL INCREASED
  5. TOPROL [Concomitant]
     Indication: HEART RATE IRREGULAR
  6. NIACIN [Concomitant]
     Indication: CARDIOVASCULAR EVENT PROPHYLAXIS
     Dosage: OVER THE COUNTER
  7. KRILL OIL [Concomitant]
     Indication: CARDIOVASCULAR EVENT PROPHYLAXIS
  8. MULTIPLE VITAMINS [Concomitant]
     Indication: VITAMIN SUPPLEMENTATION
  9. OMEPRAZOLE [Concomitant]
     Indication: GASTROOESOPHAGEAL REFLUX DISEASE

REACTIONS (2)
  - Inappropriate schedule of drug administration [Unknown]
  - Blood testosterone decreased [Not Recovered/Not Resolved]
